FAERS Safety Report 5200781-3 (Version None)
Quarter: 2006Q4

REPORT INFORMATION
  Report Type: 
  Country: None (occurrence: None)
  Receive Date: 20061016
  Receipt Date: 20060626
  Transmission Date: 20070319
  Serious: No
  Sender: FDA-Public Use
  Company Number: 2006SP002535

PATIENT
  Age: 59 Year
  Sex: Female
  Weight: 122.4712 kg

DRUGS (8)
  1. LUNESTA [Suspect]
     Indication: INSOMNIA
     Dosage: SEE IMAGE
     Route: 048
     Dates: start: 20050801, end: 20050901
  2. LUNESTA [Suspect]
     Indication: INSOMNIA
     Dosage: SEE IMAGE
     Route: 048
     Dates: start: 20050901, end: 20060601
  3. TRIAZOLAM [Concomitant]
  4. FEMARA [Concomitant]
  5. COREG [Concomitant]
  6. ATORVASTATIN CALCIUM [Concomitant]
  7. ASPIRIN [Concomitant]
  8. CENTRUM SILVER [Concomitant]

REACTIONS (4)
  - DRUG EFFECT DECREASED [None]
  - DRUG INEFFECTIVE [None]
  - DYSGEUSIA [None]
  - INSOMNIA [None]
